FAERS Safety Report 15284752 (Version 1)
Quarter: 2018Q3

REPORT INFORMATION
  Report Type: Spontaneous
  Country: GB (occurrence: GB)
  Receive Date: 20180816
  Receipt Date: 20180816
  Transmission Date: 20181010
  Serious: Yes (Hospitalization, Other)
  Sender: FDA-Public Use
  Company Number: GB-TEVA-2018-GB-940183

PATIENT
  Age: 24 Year
  Sex: Female
  Weight: 116 kg

DRUGS (7)
  1. QVAR [Concomitant]
     Active Substance: BECLOMETHASONE DIPROPIONATE
     Dosage: 2 DOSAGE FORMS DAILY; INHALE 1 DOSE TWICE DAILY
     Route: 055
  2. NEXPLANON [Suspect]
     Active Substance: ETONOGESTREL
     Indication: CONTRACEPTION
     Route: 059
     Dates: start: 20170105
  3. SALBUTAMOL [Concomitant]
     Active Substance: ALBUTEROL
     Indication: RESPIRATION ABNORMAL
     Dosage: ONE OR TWO PUFFS WHEN REQUIRED
     Route: 055
  4. ARIPIPRAZOLE. [Concomitant]
     Active Substance: ARIPIPRAZOLE
     Dosage: 1 DOSAGE FORMS DAILY; TAKE ONE DAILY
     Route: 048
  5. PROMETHAZINE HYDROCHLORIDE. [Concomitant]
     Active Substance: PROMETHAZINE HYDROCHLORIDE
     Dosage: TAKE 1?2 DAILY AS NEED
     Route: 048
  6. MIRTAZAPINE. [Suspect]
     Active Substance: MIRTAZAPINE
     Dosage: ONE TO BE TAKEN EACH NIGHT
     Route: 048
  7. SERTRALINE HYDROCHLORIDE. [Concomitant]
     Active Substance: SERTRALINE HYDROCHLORIDE
     Dosage: TAKE TWO DAILY
     Route: 048

REACTIONS (7)
  - Exposure during pregnancy [Recovered/Resolved]
  - Unintended pregnancy [Recovered/Resolved]
  - Appendicectomy [Unknown]
  - Amenorrhoea [Unknown]
  - Abortion spontaneous [Unknown]
  - Pregnancy with implant contraceptive [Recovered/Resolved]
  - Post abortion haemorrhage [Unknown]

NARRATIVE: CASE EVENT DATE: 2017
